FAERS Safety Report 19944882 (Version 2)
Quarter: 2021Q4

REPORT INFORMATION
  Report Type: Spontaneous
  Country: US (occurrence: None)
  Receive Date: 20211011
  Receipt Date: 20211115
  Transmission Date: 20220303
  Serious: No
  Sender: FDA-Public Use
  Company Number: 2021A748356

PATIENT
  Sex: Male
  Weight: 89.8 kg

DRUGS (2)
  1. PULMICORT FLEXHALER [Suspect]
     Active Substance: BUDESONIDE
     Indication: COVID-19
     Dosage: 180.0UG UNKNOWN
     Route: 055
     Dates: start: 20210630, end: 20210706
  2. ALBUTEROL [Concomitant]
     Active Substance: ALBUTEROL
     Indication: Dyspnoea
     Dates: start: 20210706, end: 20210730

REACTIONS (4)
  - Malaise [Unknown]
  - Illness [Unknown]
  - Drug ineffective [Unknown]
  - Device malfunction [Unknown]
